FAERS Safety Report 8554266-7 (Version None)
Quarter: 2012Q3

REPORT INFORMATION
  Report Type: 
  Country: None (occurrence: None)
  Receive Date: 20120731
  Receipt Date: 20120723
  Transmission Date: 20120928
  Serious: Yes (Hospitalization)
  Sender: FDA-Public Use
  Company Number: JP-VERTEX PHARMACEUTICALS INC.-AE-2012-010906

PATIENT
  Age: 51 Year
  Sex: Male

DRUGS (6)
  1. TELAVIC (TELAPREVIR) [Suspect]
     Route: 048
     Dates: start: 20120508
  2. PAXIL [Concomitant]
     Route: 048
  3. OLMESARTAN MEDOXOMIL [Concomitant]
     Route: 048
  4. REBETOL [Concomitant]
     Route: 048
  5. AMLODIPINE [Concomitant]
     Route: 048
  6. ZOLPIDEM [Concomitant]
     Route: 048

REACTIONS (1)
  - URINARY TRACT INFECTION [None]
